FAERS Safety Report 7098543-8 (Version None)
Quarter: 2010Q4

REPORT INFORMATION
  Report Type: 
  Country: None (occurrence: None)
  Receive Date: 20101112
  Receipt Date: 20101029
  Transmission Date: 20110411
  Serious: Yes (Hospitalization)
  Sender: FDA-Public Use
  Company Number: PHHY2010AU57917

PATIENT
  Sex: Female

DRUGS (15)
  1. CLOZARIL [Suspect]
     Indication: BIPOLAR DISORDER
     Dosage: 50 MG, MORNING AND 150 MG AT NIGHT
     Route: 048
     Dates: start: 20100809, end: 20100826
  2. LITHIUM [Concomitant]
     Dosage: 225 MG BD
     Dates: end: 20100826
  3. LAMOTRIGINE [Concomitant]
     Dosage: 125 MG MORNING
     Route: 048
  4. LAMOTRIGINE [Concomitant]
     Dosage: 150 MG NIGHT
  5. CLOMIPRAMINE [Concomitant]
     Dosage: 25 MG, MORNING
     Route: 048
  6. CLOMIPRAMINE [Concomitant]
     Dosage: 50 MG, NIGHT
  7. TOPIRAMATE [Concomitant]
     Dosage: 25 MG NIGHT
  8. FISH OIL [Concomitant]
     Dosage: 100 MCG, NIGHT
  9. FLAXSEED OIL [Concomitant]
     Dosage: 1 NIGHT
  10. VITAMIN E [Concomitant]
     Dosage: 1000 U  NIGHT
  11. ZINC PRODUCTS [Concomitant]
     Dosage: 1 NIGHT
  12. NUTRITION SUPPLEMENTS [Concomitant]
     Dosage: NIGHT
  13. VITAMIN D3 [Concomitant]
     Dosage: NIGHT
  14. IRON [Concomitant]
     Dosage: NIGHT
  15. FIBERCON [Concomitant]
     Dosage: 01 NOCTE

REACTIONS (39)
  - ALANINE AMINOTRANSFERASE INCREASED [None]
  - ATRIAL FIBRILLATION [None]
  - ATRIOVENTRICULAR BLOCK FIRST DEGREE [None]
  - BLOOD GLUCOSE INCREASED [None]
  - BLOOD PRESSURE INCREASED [None]
  - BLOOD SODIUM DECREASED [None]
  - BLOOD UREA INCREASED [None]
  - BODY TEMPERATURE FLUCTUATION [None]
  - C-REACTIVE PROTEIN INCREASED [None]
  - CHEST PAIN [None]
  - CREPITATIONS [None]
  - DELIRIUM [None]
  - DYSPNOEA [None]
  - ELECTROCARDIOGRAM QT PROLONGED [None]
  - ENURESIS [None]
  - GAMMA-GLUTAMYLTRANSFERASE INCREASED [None]
  - GLOMERULAR FILTRATION RATE DECREASED [None]
  - HAEMODYNAMIC INSTABILITY [None]
  - HALLUCINATION [None]
  - HYPOKINESIA [None]
  - LEFT VENTRICULAR DYSFUNCTION [None]
  - LEFT VENTRICULAR HYPERTROPHY [None]
  - LYMPHOPENIA [None]
  - MALAISE [None]
  - MITRAL VALVE INCOMPETENCE [None]
  - MITRAL VALVE PROLAPSE [None]
  - MYOCARDITIS [None]
  - NEUTROPHILIA [None]
  - OROPHARYNGEAL PAIN [None]
  - OXYGEN SATURATION DECREASED [None]
  - PNEUMONIA [None]
  - PYREXIA [None]
  - SALIVARY HYPERSECRETION [None]
  - SEDATION [None]
  - SEPSIS [None]
  - TACHYCARDIA [None]
  - TACHYPNOEA [None]
  - TROPONIN INCREASED [None]
  - WHITE BLOOD CELL COUNT INCREASED [None]
